FAERS Safety Report 10775545 (Version 1)
Quarter: 2015Q1

REPORT INFORMATION
  Report Type: Spontaneous
  Country: SI (occurrence: None)
  Receive Date: 20150205
  Receipt Date: 20150205
  Transmission Date: 20150721
  Serious: Yes (Other)
  Sender: FDA-Public Use
  Company Number: ADR-2015-00241

PATIENT
  Age: 51 Year
  Sex: Female
  Weight: 55 kg

DRUGS (1)
  1. INTRATHECAL BACLOFEN [Suspect]
     Active Substance: BACLOFEN

REACTIONS (1)
  - Medical device complication [None]

NARRATIVE: CASE EVENT DATE: 20150125
